FAERS Safety Report 20724589 (Version 2)
Quarter: 2022Q3

REPORT INFORMATION
  Report Type: Spontaneous
  Country: US (occurrence: None)
  Receive Date: 20220419
  Receipt Date: 20220928
  Transmission Date: 20221026
  Serious: Yes (Death, Other)
  Sender: FDA-Public Use
  Company Number: US-ROCHE-3077209

PATIENT
  Age: 70 Year
  Sex: Female
  Weight: 66.1 kg

DRUGS (7)
  1. XELODA [Suspect]
     Active Substance: CAPECITABINE
     Indication: Breast cancer metastatic
     Dosage: NO
     Route: 048
     Dates: start: 202104, end: 202111
  2. XELODA [Suspect]
     Active Substance: CAPECITABINE
     Dosage: ONE WEEK ON ON WEEK OFF.
     Route: 048
     Dates: start: 20220119, end: 20220515
  3. NERATINIB [Concomitant]
     Active Substance: NERATINIB
     Route: 048
     Dates: start: 20220119, end: 20220303
  4. COMPAZINE [Concomitant]
     Active Substance: PROCHLORPERAZINE MALEATE
     Route: 048
     Dates: start: 20210401, end: 20220303
  5. ONDANSETRON [Concomitant]
     Active Substance: ONDANSETRON
     Dates: start: 20210204, end: 20220303
  6. PALBOCICLIB [Concomitant]
     Active Substance: PALBOCICLIB
     Dosage: ON DAYS 1-21
     Route: 048
     Dates: start: 20210308, end: 20220303
  7. POTASSIUM CHLORIDE [Concomitant]
     Active Substance: POTASSIUM CHLORIDE
     Dosage: 20 MCG
     Route: 048
     Dates: start: 20210403, end: 20220303

REACTIONS (3)
  - Lacrimation increased [Not Recovered/Not Resolved]
  - Malignant neoplasm progression [Not Recovered/Not Resolved]
  - Death [Fatal]

NARRATIVE: CASE EVENT DATE: 20210401
